FAERS Safety Report 22211201 (Version 2)
Quarter: 2023Q2

REPORT INFORMATION
  Report Type: Spontaneous
  Country: FR (occurrence: FR)
  Receive Date: 20230414
  Receipt Date: 20230504
  Transmission Date: 20230722
  Serious: Yes (Other)
  Sender: FDA-Public Use
  Company Number: None

PATIENT
  Age: 36 Year
  Sex: Male
  Weight: 106 kg

DRUGS (3)
  1. ACETAMINOPHEN [Suspect]
     Active Substance: ACETAMINOPHEN
     Indication: Analgesic therapy
     Dosage: 1 DOSAGE FORM, PRN (ASNECESSARY)
     Route: 048
     Dates: start: 20230315, end: 20230318
  2. CODEINE [Suspect]
     Active Substance: CODEINE
     Indication: Analgesic therapy
     Dosage: 1 DOSAGE FORM, PRN (ASNECESSARY)
     Route: 048
     Dates: start: 20230315, end: 20230317
  3. LOVENOX [Concomitant]
     Active Substance: ENOXAPARIN SODIUM
     Indication: Product used for unknown indication
     Dosage: 1 DOSAGE FORM, QD (STRENGTH: 4000 UI ANTI-XA/0,4 ML)
     Route: 058
     Dates: start: 20230315

REACTIONS (2)
  - Cholestasis [Recovering/Resolving]
  - Hepatic cytolysis [Recovering/Resolving]

NARRATIVE: CASE EVENT DATE: 20230318
